FAERS Safety Report 8804650 (Version 2)
Quarter: 2015Q3

REPORT INFORMATION
  Report Type: Report from Study
  Country: US (occurrence: US)
  Receive Date: 20120924
  Receipt Date: 20150730
  Transmission Date: 20151125
  Serious: Yes (Other)
  Sender: FDA-Public Use
  Company Number: US-ROCHE-1102967

PATIENT
  Sex: Female
  Weight: 72.7 kg

DRUGS (7)
  1. AVASTIN [Suspect]
     Active Substance: BEVACIZUMAB
     Dosage: OVER 90 MINS
     Route: 042
     Dates: start: 20060124
  2. TAXOL [Concomitant]
     Active Substance: PACLITAXEL
     Route: 065
  3. AVASTIN [Suspect]
     Active Substance: BEVACIZUMAB
     Indication: BREAST CANCER FEMALE
     Route: 042
     Dates: start: 20060130, end: 20060524
  4. BENADRYL [Concomitant]
     Active Substance: DIPHENHYDRAMINE HYDROCHLORIDE
     Route: 065
  5. TAGAMET [Concomitant]
     Active Substance: CIMETIDINE
     Route: 042
  6. TAXOL [Concomitant]
     Active Substance: PACLITAXEL
     Route: 042
  7. ALOXI [Concomitant]
     Active Substance: PALONOSETRON HYDROCHLORIDE
     Route: 042

REACTIONS (3)
  - Disease progression [Unknown]
  - Off label use [Unknown]
  - Fatigue [Unknown]
